FAERS Safety Report 24056268 (Version 1)
Quarter: 2024Q3

REPORT INFORMATION
  Report Type: Spontaneous
  Country: US (occurrence: None)
  Receive Date: 20240704
  Receipt Date: 20240704
  Transmission Date: 20241017
  Serious: Yes (Hospitalization)
  Sender: Public
  Company Number: None

PATIENT
  Age: 75 Year
  Sex: Female

DRUGS (1)
  1. METHOTREXATE [Suspect]
     Active Substance: METHOTREXATE
     Indication: Rheumatoid arthritis
     Dosage: 0.8 ML EVERY7 DAYS UNDER THE SKIN
     Route: 058
     Dates: start: 202112

REACTIONS (1)
  - Lung opacity [None]

NARRATIVE: CASE EVENT DATE: 20240607
